FAERS Safety Report 5669175-0 (Version None)
Quarter: 2008Q1

REPORT INFORMATION
  Report Type: 
  Country: None (occurrence: None)
  Receive Date: 20080317
  Receipt Date: 20080303
  Transmission Date: 20080703
  Serious: Yes (Hospitalization)
  Sender: FDA-Public Use
  Company Number: BR-JNJFOC-20080303611

PATIENT
  Sex: Female

DRUGS (2)
  1. TRAMAL [Suspect]
     Indication: PAIN
     Route: 065
  2. MORPHINE [Concomitant]
     Indication: DRUG USE FOR UNKNOWN INDICATION
     Route: 065

REACTIONS (4)
  - FIBROSIS [None]
  - INTERVERTEBRAL DISC PROTRUSION [None]
  - OSTEOARTHRITIS [None]
  - SURGERY [None]
